FAERS Safety Report 7360074-5 (Version None)
Quarter: 2011Q1

REPORT INFORMATION
  Report Type: 
  Country: None (occurrence: None)
  Receive Date: 20110317
  Receipt Date: 20110221
  Transmission Date: 20110831
  Serious: No
  Sender: FDA-Public Use
  Company Number: US-B.I. PHARMACEUTICALS,INC./RIDGEFIELD-2011-BP-05811BP

PATIENT
  Age: 82 Year
  Sex: Female

DRUGS (5)
  1. METOPROLOL TARTRATE [Concomitant]
     Indication: HYPERTENSION
  2. PRADAXA [Suspect]
     Indication: ATRIAL FIBRILLATION
     Dosage: 300 MG
     Dates: start: 20101112
  3. PRADAXA [Suspect]
     Indication: ATRIAL FLUTTER
     Dosage: 300 MG
     Route: 048
     Dates: start: 20101224
  4. FOSAMAX [Concomitant]
     Indication: BONE DISORDER
  5. PRILOSEC [Concomitant]
     Indication: ABDOMINAL DISCOMFORT
     Dates: start: 20090101

REACTIONS (1)
  - ARTHRALGIA [None]
